FAERS Safety Report 6291207-X (Version None)
Quarter: 2009Q3

REPORT INFORMATION
  Report Type: 
  Country: None (occurrence: None)
  Receive Date: 20090729
  Receipt Date: 20090729
  Transmission Date: 20100115
  Serious: Yes (Other)
  Sender: FDA-Public Use
  Company Number: None

PATIENT
  Sex: Female
  Weight: 65.7716 kg

DRUGS (1)
  1. CIPROFLOXACIN HCL [Suspect]
     Indication: GENITAL INFECTION BACTERIAL
     Dosage: 500 MG BID PO
     Route: 048
     Dates: start: 20090721, end: 20090722

REACTIONS (14)
  - ABDOMINAL PAIN [None]
  - ABDOMINAL TENDERNESS [None]
  - ANXIETY [None]
  - CHILLS [None]
  - DECREASED APPETITE [None]
  - FATIGUE [None]
  - HEADACHE [None]
  - LETHARGY [None]
  - LIVER INJURY [None]
  - NAUSEA [None]
  - POLLAKIURIA [None]
  - SLEEP DISORDER [None]
  - SOMNOLENCE [None]
  - VOMITING [None]
